FAERS Safety Report 4617519-0 (Version None)
Quarter: 2005Q1

REPORT INFORMATION
  Report Type: 
  Country: None (occurrence: None)
  Receive Date: 20050324
  Receipt Date: 20050318
  Transmission Date: 20050727
  Serious: Yes (Hospitalization)
  Sender: FDA-Public Use
  Company Number: FR-BRISTOL-MYERS SQUIBB COMPANY-12902714

PATIENT
  Age: 64 Year
  Sex: Male

DRUGS (4)
  1. REYATAZ [Suspect]
     Indication: HIV INFECTION
     Dosage: INTERRUPTED JAN-2005 TO 01-MAR-2005
     Route: 048
     Dates: start: 20040901, end: 20050311
  2. SUSTIVA [Suspect]
     Indication: HIV INFECTION
     Dosage: INTERRUPTED JAN-2005 TO 01-MAR-2005
     Dates: start: 20040901, end: 20050311
  3. NORVIR [Concomitant]
     Indication: HIV INFECTION
     Dosage: INTERRUPTED JAN-2005 TO 01-MAR-2005
     Dates: start: 20040901, end: 20050311
  4. VIREAD [Concomitant]
     Indication: HIV INFECTION
     Dosage: INTERRUPTED JAN-2005 TO 01-MAR-2005
     Dates: start: 20040901, end: 20050311

REACTIONS (3)
  - HAEMOLYTIC ANAEMIA [None]
  - HYPERBILIRUBINAEMIA [None]
  - NERVOUS SYSTEM DISORDER [None]
